FAERS Safety Report 13647456 (Version 3)
Quarter: 2017Q3

REPORT INFORMATION
  Report Type: Spontaneous
  Country: US (occurrence: US)
  Receive Date: 20170613
  Receipt Date: 20170801
  Transmission Date: 20171127
  Serious: Yes (Hospitalization, Other)
  Sender: FDA-Public Use
  Company Number: US-JUBILANT CADISTA PHARMACEUTICALS-2017JUB00191

PATIENT
  Age: 74 Year
  Sex: Female
  Weight: 136.5 kg

DRUGS (9)
  1. PREDNISONE. [Suspect]
     Active Substance: PREDNISONE
     Dosage: 20 MG, 1X/DAY
     Dates: start: 20141016
  2. PREDNISONE. [Suspect]
     Active Substance: PREDNISONE
     Dosage: ALTERNATE 20 MG DAILY AND 5 MG DAILY
     Dates: start: 20150513
  3. LEVOTHYROXINE. [Concomitant]
     Active Substance: LEVOTHYROXINE
     Dosage: UNK
  4. PREDNISONE. [Suspect]
     Active Substance: PREDNISONE
     Indication: LIGAMENT SPRAIN
     Dosage: 40 MG X 3 DAYS, 30 MG X 3 DAYS, 20 MG X 3 DAYS, 10 MG X 3 DAYS, 1X/DAY
     Dates: start: 20141006, end: 20141017
  5. UNSPECIFIED MEDICATION [Suspect]
     Active Substance: UNSPECIFIED INGREDIENT
     Dosage: UNK
     Dates: start: 201705
  6. PREDNISONE. [Suspect]
     Active Substance: PREDNISONE
     Dosage: ALTERNATE 20 MG DAILY AND 10 MG DAILY
     Dates: start: 20150323, end: 20150327
  7. PREDNISONE. [Suspect]
     Active Substance: PREDNISONE
     Indication: CHRONIC OBSTRUCTIVE PULMONARY DISEASE
     Dosage: 40 MG X 3 DAYS, 30 MG X 3 DAYS, 20 MG X 3 DAYS, 10 MG X 3 DAYS, 1X/DAY
     Dates: start: 20120427, end: 20120508
  8. PREDNISONE. [Suspect]
     Active Substance: PREDNISONE
     Indication: OSTEOARTHRITIS
     Dosage: 40 MG X 3 DAYS, 30 MG X 3 DAYS, 20 MG X 3 DAYS, 10 MG X 3 DAYS, 1X/DAY
     Dates: start: 20130104, end: 20130115
  9. ^BRIO^ [Concomitant]
     Dosage: 0.5 DOSAGE UNITS, 2X/DAY

REACTIONS (14)
  - Chest pain [Unknown]
  - Gait disturbance [Not Recovered/Not Resolved]
  - Pain [Unknown]
  - Memory impairment [Unknown]
  - Obesity [Unknown]
  - Oedema [Not Recovered/Not Resolved]
  - Chronic obstructive pulmonary disease [Unknown]
  - Laboratory test abnormal [Unknown]
  - Loss of personal independence in daily activities [Not Recovered/Not Resolved]
  - Weight increased [Unknown]
  - Hypokinesia [Unknown]
  - Wound [Not Recovered/Not Resolved]
  - Peripheral swelling [Not Recovered/Not Resolved]
  - Dry skin [Not Recovered/Not Resolved]

NARRATIVE: CASE EVENT DATE: 20140527
